FAERS Safety Report 18815061 (Version 1)
Quarter: 2021Q1

REPORT INFORMATION
  Report Type: Spontaneous
  Country: US (occurrence: US)
  Receive Date: 20210129
  Receipt Date: 20210129
  Transmission Date: 20210419
  Serious: Yes (Other)
  Sender: FDA-Public Use
  Company Number: None

PATIENT
  Age: 18 Year
  Sex: Female
  Weight: 65.25 kg

DRUGS (4)
  1. BIRTHCONTROL (LARIN) [Concomitant]
  2. BUSPIRONE [Concomitant]
     Active Substance: BUSPIRONE HYDROCHLORIDE
  3. BUPROPION HCI ER (SR) 100 MG TAB ACTA [Suspect]
     Active Substance: BUPROPION HYDROCHLORIDE
     Indication: DEPRESSION
     Route: 048
     Dates: start: 20201230, end: 20210109
  4. PAROXETINE. [Concomitant]
     Active Substance: PAROXETINE

REACTIONS (3)
  - Rash [None]
  - Rash pruritic [None]
  - Irritability [None]

NARRATIVE: CASE EVENT DATE: 20210109
